FAERS Safety Report 6725469-9 (Version None)
Quarter: 2010Q2

REPORT INFORMATION
  Report Type: 
  Country: None (occurrence: None)
  Receive Date: 20100513
  Receipt Date: 20100513
  Transmission Date: 20101027
  Serious: Yes (Death, Hospitalization)
  Sender: FDA-Public Use
  Company Number: None

PATIENT
  Sex: Female
  Weight: 58.9676 kg

DRUGS (2)
  1. TAMOXIFEN CITRATE [Suspect]
     Indication: GENE MUTATION IDENTIFICATION TEST POSITIVE
     Dosage: 10 MN 1 DAILY ORAL
     Route: 048
     Dates: start: 20071001
  2. TAMOXIFEN CITRATE [Suspect]
     Indication: GENE MUTATION IDENTIFICATION TEST POSITIVE
     Dosage: 10 MN 1 DAILY ORAL
     Route: 048
     Dates: start: 20100201

REACTIONS (1)
  - CEREBROVASCULAR ACCIDENT [None]
